FAERS Safety Report 18074611 (Version 1)
Quarter: 2020Q3

REPORT INFORMATION
  Report Type: Spontaneous
  Country: FR (occurrence: FR)
  Receive Date: 20200727
  Receipt Date: 20200727
  Transmission Date: 20201103
  Serious: Yes (Other)
  Sender: FDA-Public Use
  Company Number: FR-VERTEX PHARMACEUTICALS-2020-015145

PATIENT
  Age: 8 Year
  Sex: Male
  Weight: 26.4 kg

DRUGS (7)
  1. ORKAMBI [Suspect]
     Active Substance: IVACAFTOR\LUMACAFTOR
     Indication: CYSTIC FIBROSIS
     Dosage: 4 DOSAGE FORM, QD
     Route: 048
     Dates: start: 202002
  2. VITAMINE A [Concomitant]
     Active Substance: RETINOL
     Indication: MALABSORPTION
     Dates: start: 2012
  3. ZYMAD [Concomitant]
     Active Substance: CHOLECALCIFEROL
     Indication: MALABSORPTION
     Dosage: 10 000 UI/ML, SOLUTION BUVABLE EN GOUTTES
     Route: 048
     Dates: start: 2012
  4. SEREVENT DISKUS [Concomitant]
     Active Substance: SALMETEROL XINAFOATE
     Indication: BRONCHIAL HYPERREACTIVITY
     Dosage: 2 BOUFFEES 2 X/J
     Route: 055
     Dates: start: 2019
  5. CREON [Concomitant]
     Active Substance: PANCRELIPASE AMYLASE\PANCRELIPASE LIPASE\PANCRELIPASE PROTEASE
     Indication: PANCREATIC FAILURE
     Dosage: 25 000 U, GRANULES GASTRO?RESISTANTS EN GELULE
     Dates: start: 2012
  6. TOCOPHERYL ACETATE?D?ALPHA [Concomitant]
     Active Substance: .ALPHA.-TOCOPHEROL ACETATE, D-
     Indication: MALABSORPTION
     Dosage: 500 MG, CAPSULE MOLLE
     Route: 048
     Dates: start: 2012
  7. CHLORURE DE SODIUM [Concomitant]
     Active Substance: SODIUM CHLORIDE
     Indication: MALABSORPTION
     Route: 048
     Dates: start: 2012

REACTIONS (2)
  - Arrhythmia [Not Recovered/Not Resolved]
  - Ventricular extrasystoles [Not Recovered/Not Resolved]

NARRATIVE: CASE EVENT DATE: 20200526
